FAERS Safety Report 17186830 (Version 2)
Quarter: 2020Q1

REPORT INFORMATION
  Report Type: Report from Study
  Country: PK (occurrence: PK)
  Receive Date: 20191220
  Receipt Date: 20200127
  Transmission Date: 20200409
  Serious: Yes (Death, Other)
  Sender: FDA-Public Use
  Company Number: PK-INCYTE CORPORATION-2019IN012558

PATIENT

DRUGS (1)
  1. JAKAVI [Suspect]
     Active Substance: RUXOLITINIB
     Indication: PRIMARY MYELOFIBROSIS
     Dosage: 15 MG, BID
     Route: 048
     Dates: start: 20190401

REACTIONS (6)
  - Constipation [Unknown]
  - Loss of consciousness [Unknown]
  - Gastrointestinal disorder [Unknown]
  - Death [Fatal]
  - Abdominal distension [Unknown]
  - Dysuria [Unknown]

NARRATIVE: CASE EVENT DATE: 20191111
